FAERS Safety Report 12932150 (Version 2)
Quarter: 2016Q4

REPORT INFORMATION
  Report Type: Spontaneous
  Country: IT (occurrence: IT)
  Receive Date: 20161111
  Receipt Date: 20161118
  Transmission Date: 20170207
  Serious: Yes (Hospitalization)
  Sender: FDA-Public Use
  Company Number: IT-SUN PHARMACEUTICAL INDUSTRIES LTD-2016RR-127202

PATIENT
  Age: 24 Year
  Sex: Male

DRUGS (2)
  1. BROMAZEPAM [Suspect]
     Active Substance: BROMAZEPAM
     Indication: DRUG ABUSE
     Dosage: TOTAL
     Route: 048
     Dates: start: 20160124, end: 20160124
  2. PLASIL [Suspect]
     Active Substance: METOCLOPRAMIDE HYDROCHLORIDE
     Indication: DRUG ABUSE
     Dosage: TOTAL
     Route: 048
     Dates: start: 20160124, end: 20160124

REACTIONS (4)
  - Drug abuse [Recovering/Resolving]
  - Hyperglycaemia [Recovering/Resolving]
  - Hyporesponsive to stimuli [Recovering/Resolving]
  - Pulse absent [Recovering/Resolving]

NARRATIVE: CASE EVENT DATE: 20160124
